FAERS Safety Report 4383649-4 (Version None)
Quarter: 2004Q2

REPORT INFORMATION
  Report Type: 
  Country: None (occurrence: None)
  Receive Date: 20040623
  Receipt Date: 20040617
  Transmission Date: 20050107
  Serious: Yes (Other)
  Sender: FDA-Public Use
  Company Number: US-GLAXOSMITHKLINE-A0515217A

PATIENT
  Age: 33 Year
  Sex: Female

DRUGS (1)
  1. PAXIL [Suspect]
     Indication: ILL-DEFINED DISORDER
     Dosage: 10MG UNKNOWN
     Route: 048
     Dates: end: 20040614

REACTIONS (3)
  - DRUG WITHDRAWAL SYNDROME [None]
  - MOOD SWINGS [None]
  - SUICIDAL IDEATION [None]
